FAERS Safety Report 4339341-5 (Version None)
Quarter: 2004Q2

REPORT INFORMATION
  Report Type: 
  Country: None (occurrence: None)
  Receive Date: 20040414
  Receipt Date: 20040414
  Transmission Date: 20050107
  Serious: Yes (Disabling)
  Sender: FDA-Public Use
  Company Number: None

PATIENT
  Age: 59 Year
  Sex: Male
  Weight: 81.6475 kg

DRUGS (1)
  1. LEVAQUIN [Suspect]
     Indication: URINARY TRACT INFECTION
     Dosage: ONCE DAILY ORAL
     Route: 048
     Dates: start: 20040229, end: 20040303

REACTIONS (4)
  - DEAFNESS BILATERAL [None]
  - DYSGEUSIA [None]
  - TINNITUS [None]
  - VERTIGO [None]
